FAERS Safety Report 12926506 (Version 1)
Quarter: 2016Q4

REPORT INFORMATION
  Report Type: Spontaneous
  Country: GB (occurrence: GB)
  Receive Date: 20161109
  Receipt Date: 20161109
  Transmission Date: 20170207
  Serious: Yes (Other)
  Sender: FDA-Public Use
  Company Number: GB-TEVA-709758ACC

PATIENT
  Age: 40 Year
  Sex: Female

DRUGS (3)
  1. CISPLATIN. [Suspect]
     Active Substance: CISPLATIN
     Dosage: UNK
     Route: 065
     Dates: start: 20130101
  2. DEXAMETHASONE SODIUM PHOSPHATE. [Suspect]
     Active Substance: DEXAMETHASONE SODIUM PHOSPHATE
     Dosage: UNK
     Route: 065
  3. PEMETREXED [Suspect]
     Active Substance: PEMETREXED
     Dosage: UNK (MAINTENANCE DOSE)
     Route: 065
     Dates: start: 20130101

REACTIONS (8)
  - Depressed mood [Unknown]
  - Rash [Unknown]
  - Mobility decreased [Unknown]
  - Headache [Unknown]
  - Tearfulness [Unknown]
  - Weight increased [Unknown]
  - Metastases to spine [Unknown]
  - Metastases to central nervous system [Unknown]

NARRATIVE: CASE EVENT DATE: 20130101
